FAERS Safety Report 6526317-2 (Version None)
Quarter: 2010Q1

REPORT INFORMATION
  Report Type: 
  Country: None (occurrence: None)
  Receive Date: 20100105
  Receipt Date: 20091222
  Transmission Date: 20100710
  Serious: Yes (Other)
  Sender: FDA-Public Use
  Company Number: US-RANBAXY-2009RR-30190

PATIENT
  Age: 44 Year
  Sex: Female

DRUGS (4)
  1. ACICLOVIR [Suspect]
  2. FAMCICLOVIR [Suspect]
     Dosage: UNK
     Route: 048
  3. TACROLIMUS [Concomitant]
  4. PREDNISOLONE [Concomitant]
     Indication: GRAFT VERSUS HOST DISEASE

REACTIONS (4)
  - DRUG RESISTANCE [None]
  - HYPONATRAEMIA [None]
  - NEUTROPENIA [None]
  - RENAL IMPAIRMENT [None]
